FAERS Safety Report 5932193-9 (Version None)
Quarter: 2008Q4

REPORT INFORMATION
  Report Type: 
  Country: None (occurrence: None)
  Receive Date: 20081023
  Receipt Date: 20060705
  Transmission Date: 20090506
  Serious: Yes (Hospitalization, Other)
  Sender: FDA-Public Use
  Company Number: 2006AL002218

PATIENT
  Age: 71 Year
  Sex: Female

DRUGS (5)
  1. NAPROXEN [Suspect]
     Indication: ARTHRITIS
     Dosage: 375 MG; BID; PO
     Route: 048
  2. AMITRIPTYLINE HCL [Concomitant]
  3. FRUSEMIDE [Concomitant]
  4. MEDROXYPROGESTERONE [Concomitant]
  5. TAMOXIFEN [Concomitant]

REACTIONS (3)
  - GASTRIC ULCER [None]
  - HAEMOGLOBIN DECREASED [None]
  - OESOPHAGEAL ULCER [None]
